FAERS Safety Report 5277365-4 (Version None)
Quarter: 2007Q1

REPORT INFORMATION
  Report Type: 
  Country: None (occurrence: None)
  Receive Date: 20070327
  Receipt Date: 20070315
  Transmission Date: 20070707
  Serious: Yes (Other)
  Sender: FDA-Public Use
  Company Number: HQWYE964116MAR07

PATIENT
  Age: 75 Year
  Sex: Male

DRUGS (1)
  1. MYLOTARG [Suspect]
     Indication: ACUTE MYELOID LEUKAEMIA
     Dosage: 9 MG/M^2
     Route: 042
     Dates: start: 20060101

REACTIONS (3)
  - BONE MARROW DISORDER [None]
  - GRANULOMA [None]
  - LIVER DISORDER [None]
